FAERS Safety Report 8980085 (Version 2)
Quarter: 2013Q1

REPORT INFORMATION
  Report Type: Spontaneous
  Country: US (occurrence: US)
  Receive Date: 20121221
  Receipt Date: 20130109
  Transmission Date: 20140127
  Serious: Yes (Other)
  Sender: FDA-Public Use
  Company Number: CHPA2012US025357

PATIENT
  Age: 84 Year
  Sex: Female

DRUGS (2)
  1. MAALOX ANTACID/ANTIGAS MAX QDTABS ASST [Suspect]
     Indication: MUSCLE SPASMS
     Dosage: 2 DF, UNK
     Route: 048
     Dates: start: 2002, end: 20121206
  2. MAALOX ANTACID/ANTIGAS MAX LIQ UNKNOWN [Suspect]
     Indication: MUSCLE SPASMS
     Dosage: UNK, UNK
     Route: 048
     Dates: start: 2000

REACTIONS (9)
  - Cardiac failure congestive [Not Recovered/Not Resolved]
  - Lymphoma [Recovered/Resolved]
  - Diarrhoea [Recovered/Resolved]
  - Gastrointestinal pain [Recovered/Resolved]
  - Flatulence [Recovered/Resolved]
  - Condition aggravated [Recovered/Resolved]
  - Lactose intolerance [Not Recovered/Not Resolved]
  - Concomitant disease aggravated [Not Recovered/Not Resolved]
  - Off label use [Unknown]
